FAERS Safety Report 7707679-7 (Version None)
Quarter: 2011Q3

REPORT INFORMATION
  Report Type: 
  Country: None (occurrence: None)
  Receive Date: 20110824
  Receipt Date: 20110616
  Transmission Date: 20111222
  Serious: No
  Sender: FDA-Public Use
  Company Number: US-BAYER-2011-053052

PATIENT
  Age: 9 Week
  Sex: Female

DRUGS (1)
  1. MIRENA [Suspect]
     Indication: CONTRACEPTION
     Dosage: 20 MG, UNK
     Route: 015
     Dates: start: 20110531, end: 20110614

REACTIONS (2)
  - POST PROCEDURAL DISCOMFORT [None]
  - DEVICE EXPULSION [None]
